FAERS Safety Report 7382848-7 (Version None)
Quarter: 2011Q1

REPORT INFORMATION
  Report Type: 
  Country: None (occurrence: None)
  Receive Date: 20110330
  Receipt Date: 20110316
  Transmission Date: 20110831
  Serious: Yes (Hospitalization)
  Sender: FDA-Public Use
  Company Number: DE-CELGENEUS-062-21880-11030343

PATIENT
  Age: 58 Year
  Sex: Female
  Weight: 88.7 kg

DRUGS (7)
  1. PANTOZOL [Concomitant]
     Indication: GASTROINTESTINAL DISORDER
     Dosage: 40 MILLIGRAM
     Route: 048
     Dates: start: 20101104
  2. REVLIMID [Suspect]
     Dosage: 25 MILLIGRAM
     Route: 048
     Dates: start: 20110205, end: 20110210
  3. ASPIRIN [Concomitant]
     Indication: PROPHYLAXIS
     Route: 065
  4. DEXAMETHASONE [Concomitant]
     Route: 048
     Dates: start: 20101211
  5. ACYCLOVIR [Concomitant]
     Indication: PROPHYLAXIS
     Dosage: 800 MILLIGRAM
     Route: 048
     Dates: start: 20101216
  6. REVLIMID [Suspect]
     Indication: MULTIPLE MYELOMA
     Dosage: 25 MILLIGRAM
     Route: 048
     Dates: start: 20101109, end: 20110210
  7. DEXAMETHASONE [Concomitant]
     Indication: MULTIPLE MYELOMA
     Route: 048
     Dates: start: 20101109

REACTIONS (1)
  - PNEUMONIA [None]
